FAERS Safety Report 8046176-9 (Version None)
Quarter: 2012Q1

REPORT INFORMATION
  Report Type: 
  Country: None (occurrence: None)
  Receive Date: 20120113
  Receipt Date: 20120102
  Transmission Date: 20120608
  Serious: Yes (Life-Threatening, Hospitalization, Other)
  Sender: FDA-Public Use
  Company Number: FR-BRISTOL-MYERS SQUIBB COMPANY-16328999

PATIENT
  Age: 58 Year
  Sex: Female

DRUGS (16)
  1. IMIPENEM AND CILASTATIN SODIUM [Interacting]
     Route: 042
     Dates: start: 20111022, end: 20111025
  2. PANTOPRAZOLE [Concomitant]
     Dosage: GASTRO-RESISTANT TABLET
     Route: 048
     Dates: start: 20111001, end: 20111022
  3. HYPERIUM [Concomitant]
     Dosage: 1 TABLET
     Route: 048
     Dates: start: 20111010, end: 20111022
  4. UVEDOSE [Concomitant]
  5. IMOVANE [Concomitant]
  6. NEUPOGEN [Concomitant]
     Route: 058
     Dates: start: 20111021, end: 20111024
  7. ASPIRIN [Interacting]
     Dosage: POWDER FOR ORAL SOLUTION IN SACHET-DOSE
     Route: 048
     Dates: start: 20110924, end: 20111022
  8. EUPRESSYL [Concomitant]
     Dosage: 2 CAPSULES
     Route: 048
     Dates: start: 20111006, end: 20111022
  9. CIPROFLOXACIN [Interacting]
     Route: 042
     Dates: start: 20111022, end: 20111024
  10. ARANESP [Concomitant]
  11. ZANTAC [Concomitant]
     Dates: start: 20111021, end: 20111024
  12. CAPTOPRIL AND HYDROCHLOROTHIAZIDE [Suspect]
     Dosage: CAPTOPRIL ARROW 25 MG TABS
     Route: 048
     Dates: start: 20110909, end: 20111017
  13. NICARDIPINE HCL [Suspect]
     Dosage: SCORED TABLET
     Route: 048
     Dates: start: 20111004, end: 20111022
  14. HYDROCORTISONE [Concomitant]
     Route: 048
     Dates: start: 20111017, end: 20111025
  15. COUMADIN [Interacting]
     Dosage: SCORED TABLET
     Route: 048
     Dates: end: 20111024
  16. ACETAMINOPHEN [Concomitant]
     Dosage: DOLIPRANE 1000 MG,POWDER FOR ORAL SOLUTION IN SACHET-DOSE
     Route: 048
     Dates: start: 20111005, end: 20111022

REACTIONS (6)
  - INTERNATIONAL NORMALISED RATIO INCREASED [None]
  - ANAEMIA [None]
  - ANTIPHOSPHOLIPID SYNDROME [None]
  - AGRANULOCYTOSIS [None]
  - DRUG INTERACTION [None]
  - HAEMATEMESIS [None]
